FAERS Safety Report 17904343 (Version 2)
Quarter: 2021Q2

REPORT INFORMATION
  Report Type: Report from Study
  Country: US (occurrence: US)
  Receive Date: 20200616
  Receipt Date: 20210629
  Transmission Date: 20210717
  Serious: Yes (Hospitalization)
  Sender: FDA-Public Use
  Company Number: US-TEVA-2020-US-1509979

PATIENT

DRUGS (2)
  1. FLECAINIDE [Suspect]
     Active Substance: FLECAINIDE
     Indication: ATRIAL FLUTTER
     Dosage: THREE TIMES A DAY
     Route: 064
  2. SOTALOL. [Suspect]
     Active Substance: SOTALOL
     Indication: ATRIAL FLUTTER
     Dosage: THREE TIMES A DAY
     Route: 064

REACTIONS (4)
  - Toxicity to various agents [Recovered/Resolved]
  - Foetal hypokinesia [Recovered/Resolved]
  - Bradycardia foetal [Recovered/Resolved]
  - Foetal exposure during pregnancy [Unknown]
